FAERS Safety Report 5508854-2 (Version None)
Quarter: 2007Q4

REPORT INFORMATION
  Report Type: 
  Country: None (occurrence: None)
  Receive Date: 20071107
  Receipt Date: 20071031
  Transmission Date: 20080405
  Serious: Yes (Congenital Anomaly, Other)
  Sender: FDA-Public Use
  Company Number: US-AVENTIS-200717718US

PATIENT
  Sex: Female

DRUGS (1)
  1. KETEK [Suspect]
     Dosage: DOSE: 1 DOSE
     Dates: start: 20060101, end: 20060101

REACTIONS (19)
  - ASTHENIA [None]
  - BRAIN OEDEMA [None]
  - CEREBRAL INFARCTION [None]
  - COAGULOPATHY [None]
  - EYE OPERATION [None]
  - FATIGUE [None]
  - HEPATIC ENZYME INCREASED [None]
  - HEPATIC FAILURE [None]
  - HEPATITIS [None]
  - HYPERHIDROSIS [None]
  - JAUNDICE [None]
  - LETHARGY [None]
  - METABOLIC DISORDER [None]
  - NAUSEA [None]
  - PNEUMONIA [None]
  - PYREXIA [None]
  - SURGERY [None]
  - VOCAL CORD PARESIS [None]
  - VOMITING [None]
